FAERS Safety Report 14983265 (Version 1)
Quarter: 2018Q2

REPORT INFORMATION
  Report Type: Spontaneous
  Country: US (occurrence: US)
  Receive Date: 20180517
  Receipt Date: 20180517
  Transmission Date: 20180711
  Serious: No
  Sender: FDA-Public Use
  Company Number: None

PATIENT
  Age: 56 Year
  Sex: Female

DRUGS (1)
  1. ZEJULA [Suspect]
     Active Substance: NIRAPARIB
     Indication: OVARIAN CANCER
     Dates: start: 20170706, end: 20171117

REACTIONS (7)
  - Back pain [None]
  - Cardiac operation [None]
  - Swelling [None]
  - Aortic stenosis [None]
  - Fatigue [None]
  - Dyspnoea [None]
  - Full blood count decreased [None]
